FAERS Safety Report 11270654 (Version 1)
Quarter: 2015Q3

REPORT INFORMATION
  Report Type: Report from Study
  Country: HU (occurrence: HU)
  Receive Date: 20150714
  Receipt Date: 20150714
  Transmission Date: 20151125
  Serious: Yes (Hospitalization, Other)
  Sender: FDA-Public Use
  Company Number: HU-ASTRAZENECA-2014SE48768

PATIENT
  Age: 16973 Day
  Sex: Female
  Weight: 55 kg

DRUGS (5)
  1. AZD2281 [Suspect]
     Active Substance: OLAPARIB
     Indication: OVARIAN CANCER
     Route: 048
     Dates: end: 20150404
  2. AZD2281 [Suspect]
     Active Substance: OLAPARIB
     Indication: OVARIAN CANCER
     Route: 048
     Dates: start: 20140623, end: 20140630
  3. METHYLPREDNISOLONE. [Concomitant]
     Active Substance: METHYLPREDNISOLONE
     Indication: ASTHENIA
     Route: 048
     Dates: start: 20140413, end: 20140724
  4. PANTOPRAZOLE [Concomitant]
     Active Substance: PANTOPRAZOLE SODIUM
     Indication: PROPHYLAXIS
     Route: 048
     Dates: start: 20140413, end: 20140724
  5. AZD2281 [Suspect]
     Active Substance: OLAPARIB
     Indication: OVARIAN CANCER
     Route: 048
     Dates: start: 20150617

REACTIONS (4)
  - Abdominal adhesions [Unknown]
  - Small intestinal obstruction [Recovered/Resolved]
  - Neoplasm progression [Unknown]
  - Subileus [Unknown]

NARRATIVE: CASE EVENT DATE: 20140701
